FAERS Safety Report 13362291 (Version 1)
Quarter: 2017Q1

REPORT INFORMATION
  Report Type: Spontaneous
  Country: US (occurrence: US)
  Receive Date: 20170322
  Receipt Date: 20170322
  Transmission Date: 20170429
  Serious: Yes (Disabling)
  Sender: FDA-Public Use
  Company Number: None

PATIENT
  Age: 53 Year
  Sex: Female
  Weight: 54 kg

DRUGS (1)
  1. LEVAQUIN [Suspect]
     Active Substance: LEVOFLOXACIN
     Indication: URETHRITIS NONINFECTIVE
     Route: 048

REACTIONS (5)
  - Muscle injury [None]
  - Neuropathy peripheral [None]
  - Asthenia [None]
  - Tendon disorder [None]
  - Fatigue [None]

NARRATIVE: CASE EVENT DATE: 20140822
